FAERS Safety Report 5092626-X (Version None)
Quarter: 2006Q3

REPORT INFORMATION
  Report Type: 
  Country: None (occurrence: None)
  Receive Date: 20060830
  Receipt Date: 20060824
  Transmission Date: 20061208
  Serious: Yes (Hospitalization)
  Sender: FDA-Public Use
  Company Number: US-JNJFOC-20060805736

PATIENT
  Sex: Male
  Weight: 95.26 kg

DRUGS (11)
  1. REMICADE [Suspect]
     Indication: ANKYLOSING SPONDYLITIS
     Route: 042
  2. OXYCODONE HCL [Concomitant]
     Indication: PAIN
  3. ZETIA [Concomitant]
     Indication: BLOOD CHOLESTEROL
  4. CELEBREX [Concomitant]
     Indication: INFLAMMATION
  5. LIPITOR [Concomitant]
     Indication: BLOOD CHOLESTEROL
  6. AMITRIPTYLINE HCL [Concomitant]
     Indication: SLEEP DISORDER
  7. METHOTREXATE [Concomitant]
  8. NEXIUM [Concomitant]
     Indication: GASTROOESOPHAGEAL REFLUX DISEASE
  9. DIAZEPAM [Concomitant]
     Indication: DEPRESSION
  10. FLOMAX [Concomitant]
     Indication: URINARY RETENTION
  11. LISINOPRIL [Concomitant]
     Indication: HYPERTENSION

REACTIONS (4)
  - ARTHROPATHY [None]
  - BACK PAIN [None]
  - NECK PAIN [None]
  - SPINAL DISORDER [None]
